FAERS Safety Report 23944869 (Version 1)
Quarter: 2024Q2

REPORT INFORMATION
  Report Type: Spontaneous
  Country: HR (occurrence: HR)
  Receive Date: 20240606
  Receipt Date: 20240606
  Transmission Date: 20240716
  Serious: Yes (Other)
  Sender: FDA-Public Use
  Company Number: HR-002147023-NVSC2024HR113315

PATIENT
  Sex: Female

DRUGS (8)
  1. TASIGNA [Suspect]
     Active Substance: NILOTINIB
     Indication: Chronic myeloid leukaemia
     Dosage: UNK
     Route: 065
     Dates: start: 2015, end: 2019
  2. TASIGNA [Suspect]
     Active Substance: NILOTINIB
     Dosage: UNK
     Route: 065
     Dates: start: 2020, end: 2023
  3. ASCIMINIB [Suspect]
     Active Substance: ASCIMINIB
     Indication: Product used for unknown indication
     Dosage: UNK (2X40 MG)
     Route: 048
     Dates: start: 202312
  4. ASCIMINIB [Suspect]
     Active Substance: ASCIMINIB
     Dosage: UNK (REDUCED DOSE OF 2X20 MG)
     Route: 048
  5. BOSUTINIB [Suspect]
     Active Substance: BOSUTINIB
     Indication: Product used for unknown indication
     Dosage: UNK
     Route: 065
     Dates: start: 2019, end: 2020
  6. DASATINIB [Suspect]
     Active Substance: DASATINIB
     Indication: Product used for unknown indication
     Dosage: UNK
     Route: 065
     Dates: start: 2023
  7. PONATINIB [Suspect]
     Active Substance: PONATINIB
     Indication: Product used for unknown indication
     Dosage: 30 MG (WITH THE PLAN FOR DOSE ESCALATION DEPENDING ON TOLERANCE)
     Route: 048
     Dates: start: 202310
  8. PONATINIB [Suspect]
     Active Substance: PONATINIB
     Dosage: 15 MG
     Route: 048

REACTIONS (8)
  - Cytopenia [Unknown]
  - Thrombocytopenia [Recovered/Resolved]
  - Petechiae [Recovered/Resolved]
  - Palpitations [Unknown]
  - Blister [Unknown]
  - Urticaria [Unknown]
  - Pyrexia [Unknown]
  - Drug resistance [Unknown]
